FAERS Safety Report 11211211 (Version 1)
Quarter: 2015Q2

REPORT INFORMATION
  Report Type: Spontaneous
  Country: GR (occurrence: GR)
  Receive Date: 20150623
  Receipt Date: 20150623
  Transmission Date: 20150821
  Serious: Yes (Other)
  Sender: FDA-Public Use
  Company Number: GR-PAR PHARMACEUTICAL, INC-2015SCPR014057

PATIENT

DRUGS (3)
  1. COLY-MYCIN M [Suspect]
     Active Substance: COLISTIMETHATE SODIUM
     Indication: PSEUDOMONAS INFECTION
     Dosage: UNK UNK, UNKNOWN
     Route: 042
  2. COLY-MYCIN M [Suspect]
     Active Substance: COLISTIMETHATE SODIUM
     Indication: OSTEOMYELITIS CHRONIC
     Dosage: UNK UNK, UNKNOWN
     Route: 042
  3. COLY-MYCIN M [Suspect]
     Active Substance: COLISTIMETHATE SODIUM
     Dosage: UNK UNK, UNKNOWN
     Route: 042

REACTIONS (5)
  - Pruritus [Unknown]
  - Anaphylactic reaction [Recovered/Resolved]
  - Adverse reaction [Recovered/Resolved]
  - Rash [Unknown]
  - Fear of death [Unknown]
